FAERS Safety Report 21884677 (Version 1)
Quarter: 2023Q1

REPORT INFORMATION
  Report Type: Report from Study
  Country: MX (occurrence: MX)
  Receive Date: 20230119
  Receipt Date: 20230119
  Transmission Date: 20230417
  Serious: Yes (Other)
  Sender: FDA-Public Use
  Company Number: MX-002147023-NVSC2023MX009864

PATIENT
  Age: 82 Year
  Sex: Female
  Weight: 73 kg

DRUGS (1)
  1. HYDROCHLOROTHIAZIDE\VALSARTAN [Suspect]
     Active Substance: HYDROCHLOROTHIAZIDE\VALSARTAN
     Indication: Hypertension
     Dosage: 1 DOSAGE FORM, QD (IN THE MORNING)
     Route: 048
     Dates: start: 202208

REACTIONS (4)
  - Kidney infection [Recovered/Resolved]
  - Chest pain [Recovered/Resolved]
  - Blood triglycerides increased [Not Recovered/Not Resolved]
  - Blood cholesterol increased [Not Recovered/Not Resolved]

NARRATIVE: CASE EVENT DATE: 20230111
